FAERS Safety Report 8208092-9 (Version None)
Quarter: 2012Q1

REPORT INFORMATION
  Report Type: 
  Country: None (occurrence: None)
  Receive Date: 20120227
  Receipt Date: 20111102
  Transmission Date: 20120608
  Serious: No
  Sender: FDA-Public Use
  Company Number: 338669

PATIENT
  Age: 65 Year
  Sex: Female

DRUGS (1)
  1. VICTOZA [Suspect]
     Indication: TYPE 2 DIABETES MELLITUS
     Dosage: 1.6MG, QD, SUBCUTANEOUS
     Route: 058

REACTIONS (4)
  - WEIGHT DECREASED [None]
  - NAUSEA [None]
  - VOMITING [None]
  - INCORRECT DOSE ADMINISTERED [None]
